FAERS Safety Report 19030598 (Version 2)
Quarter: 2021Q3

REPORT INFORMATION
  Report Type: Other
  Country: CA (occurrence: CA)
  Receive Date: 20210319
  Receipt Date: 20210717
  Transmission Date: 20211014
  Serious: No
  Sender: FDA-Public Use
  Company Number: CA-LUPIN PHARMACEUTICALS INC.-2021-03369

PATIENT
  Age: 84 Year
  Sex: Male

DRUGS (4)
  1. CEPHALEXIN. [Suspect]
     Active Substance: CEPHALEXIN
     Indication: DIABETIC FOOT
  2. CEPHALEXIN. [Suspect]
     Active Substance: CEPHALEXIN
     Indication: JOINT INJURY
     Dosage: UNK
     Route: 048
  3. IODOPHOR [Concomitant]
     Active Substance: POVIDONE-IODINE
     Indication: PRODUCT USED FOR UNKNOWN INDICATION
     Dosage: UNK, LIQUID UDDER WASH, IODOPHOR LL LIQ
     Route: 065
  4. ACETAMINOPHEN. [Concomitant]
     Active Substance: ACETAMINOPHEN
     Indication: PAIN
     Dosage: UNK
     Route: 065

REACTIONS (1)
  - Drug ineffective [Unknown]
